FAERS Safety Report 22146370 (Version 1)
Quarter: 2023Q1

REPORT INFORMATION
  Report Type: Spontaneous
  Country: FR (occurrence: FR)
  Receive Date: 20230328
  Receipt Date: 20230328
  Transmission Date: 20230418
  Serious: Yes (Hospitalization, Other)
  Sender: FDA-Public Use
  Company Number: FR-AFSSAPS-TS2023000301

PATIENT
  Age: 46 Year
  Sex: Female

DRUGS (2)
  1. CARBOPLATIN [Suspect]
     Active Substance: CARBOPLATIN
     Indication: Ovarian cancer
     Dosage: 820 MILLIGRAM, 1 TOTAL (C1J1)
     Route: 042
     Dates: start: 20220819, end: 20220819
  2. GEMCITABINE [Concomitant]
     Active Substance: GEMCITABINE
     Indication: Ovarian cancer
     Dosage: 1700 MILLIGRAM, 7 DAYS
     Route: 042
     Dates: start: 20220819

REACTIONS (4)
  - Pancytopenia [Recovered/Resolved]
  - Accidental overdose [Recovered/Resolved]
  - Dose calculation error [Recovered/Resolved]
  - Hepatic enzyme increased [Not Recovered/Not Resolved]

NARRATIVE: CASE EVENT DATE: 20220819
